FAERS Safety Report 18667245 (Version 3)
Quarter: 2021Q3

REPORT INFORMATION
  Report Type: Report from Study
  Country: CA (occurrence: CA)
  Receive Date: 20201228
  Receipt Date: 20210820
  Transmission Date: 20211014
  Serious: Yes (Hospitalization)
  Sender: FDA-Public Use
  Company Number: CA-JNJFOC-20201153655

PATIENT
  Age: 16 Year
  Sex: Male
  Weight: 63.6 kg

DRUGS (6)
  1. REMICADE [Suspect]
     Active Substance: INFLIXIMAB
     Indication: COLITIS ULCERATIVE
     Route: 042
     Dates: start: 20090102, end: 2020
  2. REMICADE [Suspect]
     Active Substance: INFLIXIMAB
     Route: 042
     Dates: start: 2020, end: 2020
  3. REMICADE [Suspect]
     Active Substance: INFLIXIMAB
     Dosage: STAT DOSE (10MG/KG)
     Route: 042
     Dates: start: 20201214
  4. REMICADE [Suspect]
     Active Substance: INFLIXIMAB
     Route: 042
  5. REMICADE [Suspect]
     Active Substance: INFLIXIMAB
     Route: 042
     Dates: start: 20210301
  6. REMICADE [Suspect]
     Active Substance: INFLIXIMAB
     Route: 042
     Dates: start: 2020

REACTIONS (5)
  - Extra dose administered [Unknown]
  - Therapeutic product effect decreased [Unknown]
  - Infection parasitic [Unknown]
  - Off label use [Unknown]
  - Colitis ulcerative [Recovering/Resolving]

NARRATIVE: CASE EVENT DATE: 20201113
